FAERS Safety Report 18397489 (Version 2)
Quarter: 2025Q3

REPORT INFORMATION
  Report Type: Report from Study
  Country: LB (occurrence: LB)
  Receive Date: 20201019
  Receipt Date: 20250716
  Transmission Date: 20251021
  Serious: Yes (Death, Hospitalization, Other)
  Sender: NOVARTIS
  Company Number: LB-NOVARTISPH-NVSC2020LB258661

PATIENT
  Age: 80 Year
  Sex: Male
  Weight: 90 kg

DRUGS (1)
  1. ENTRESTO [Suspect]
     Active Substance: SACUBITRIL\VALSARTAN
     Indication: Product used for unknown indication
     Dosage: 50 MG, BID
     Route: 048
     Dates: start: 20200720, end: 20200917

REACTIONS (15)
  - COVID-19 [Fatal]
  - Pyrexia [Fatal]
  - Cough [Fatal]
  - Dyspnoea [Fatal]
  - Fatigue [Fatal]
  - Myalgia [Fatal]
  - Respiratory distress [Fatal]
  - Confusional state [Fatal]
  - Somnolence [Fatal]
  - Oliguria [Fatal]
  - Cardiac arrest [Fatal]
  - Respiratory failure [Unknown]
  - Multiple organ dysfunction syndrome [Unknown]
  - Acute respiratory distress syndrome [Unknown]
  - Urine output decreased [Unknown]

NARRATIVE: CASE EVENT DATE: 20200917
